FAERS Safety Report 16735915 (Version 1)
Quarter: 2019Q4

REPORT INFORMATION
  Report Type: Spontaneous
  Country: US (occurrence: US)
  Receive Date: 20190823
  Receipt Date: 20190823
  Transmission Date: 20200122
  Serious: Yes (Hospitalization)
  Sender: FDA-Public Use
  Company Number: None

PATIENT
  Age: 7 Year
  Sex: Male

DRUGS (1)
  1. ORKAMBI [Suspect]
     Active Substance: IVACAFTOR\LUMACAFTOR
     Indication: CYSTIC FIBROSIS
     Route: 048
     Dates: start: 20180801, end: 20190823

REACTIONS (3)
  - Infective pulmonary exacerbation of cystic fibrosis [None]
  - Nasopharyngitis [None]
  - Pulmonary function test decreased [None]

NARRATIVE: CASE EVENT DATE: 20190823
